FAERS Safety Report 8366302-1 (Version None)
Quarter: 2012Q2

REPORT INFORMATION
  Report Type: 
  Country: None (occurrence: None)
  Receive Date: 20120517
  Receipt Date: 20120510
  Transmission Date: 20120825
  Serious: Yes (Death)
  Sender: FDA-Public Use
  Company Number: PHHO2012US006257

PATIENT
  Sex: Male
  Weight: 87 kg

DRUGS (1)
  1. VALSARTAN [Suspect]
     Indication: HYPERTENSION
     Dosage: UNK
     Route: 048
     Dates: start: 20110929

REACTIONS (2)
  - GUN SHOT WOUND [None]
  - CERVICAL VERTEBRAL FRACTURE [None]
